FAERS Safety Report 4799792-1 (Version None)
Quarter: 2005Q4

REPORT INFORMATION
  Report Type: 
  Country: None (occurrence: None)
  Receive Date: 20051012
  Receipt Date: 20051012
  Transmission Date: 20060501
  Serious: Yes (Life-Threatening, Hospitalization)
  Sender: FDA-Public Use
  Company Number: None

PATIENT
  Age: 68 Year
  Sex: Male
  Weight: 90.3 kg

DRUGS (8)
  1. EPTIFIBATIDE KEY PHARMACEUTICALS [Suspect]
     Dosage: 2 MCG/KG/MIN INFUSION IV DRIP
     Route: 041
     Dates: start: 20051009, end: 20051010
  2. HEPARIN [Concomitant]
  3. ASPIRIN [Concomitant]
  4. METOPROLOL [Concomitant]
  5. LISINOPRIL [Concomitant]
  6. ATORVASTATIN [Concomitant]
  7. PHENERGAN [Concomitant]
  8. LABETOLOL [Concomitant]

REACTIONS (7)
  - DEPRESSED LEVEL OF CONSCIOUSNESS [None]
  - HAEMORRHAGIC STROKE [None]
  - HYPOKINESIA [None]
  - MYOCARDIAL INFARCTION [None]
  - NYSTAGMUS [None]
  - POST PROCEDURAL COMPLICATION [None]
  - PUPILS UNEQUAL [None]
